FAERS Safety Report 6397762-3 (Version None)
Quarter: 2009Q4

REPORT INFORMATION
  Report Type: 
  Country: None (occurrence: None)
  Receive Date: 20091012
  Receipt Date: 20091006
  Transmission Date: 20100525
  Serious: Yes (Hospitalization, Other)
  Sender: FDA-Public Use
  Company Number: US-AMGEN-STX367795

PATIENT
  Sex: Male

DRUGS (14)
  1. SENSIPAR [Suspect]
     Indication: HYPERPARATHYROIDISM PRIMARY
     Dates: start: 20090601
  2. AMLODIPINE [Concomitant]
  3. CYCLOSPORINE [Concomitant]
     Route: 047
  4. DOCUSATE [Concomitant]
  5. DONEPEZIL HCL [Concomitant]
  6. LOVENOX [Concomitant]
  7. INSULIN [Concomitant]
  8. PREVACID [Concomitant]
  9. LISINOPRIL [Concomitant]
  10. METOPROLOL [Concomitant]
  11. FLOMAX [Concomitant]
  12. MULTI-VITAMINS [Concomitant]
  13. ALBUTEROL [Concomitant]
     Route: 055
  14. IPRATROPIUM [Concomitant]
     Route: 055

REACTIONS (6)
  - APHAGIA [None]
  - BLOOD CALCIUM INCREASED [None]
  - DELIRIUM [None]
  - DRUG INEFFECTIVE [None]
  - DYSPHAGIA [None]
  - INFECTION [None]
